FAERS Safety Report 12931488 (Version 1)
Quarter: 2016Q4

REPORT INFORMATION
  Report Type: Spontaneous
  Country: US (occurrence: US)
  Receive Date: 20161110
  Receipt Date: 20161110
  Transmission Date: 20170207
  Serious: Yes (Other)
  Sender: FDA-Public Use
  Company Number: US-RELYPSA-RLY2016003577

PATIENT
  Sex: Female

DRUGS (11)
  1. ACTONEL [Concomitant]
     Active Substance: RISEDRONATE SODIUM
  2. ARANESP [Concomitant]
     Active Substance: DARBEPOETIN ALFA
  3. THIAMINE. [Concomitant]
     Active Substance: THIAMINE
  4. RAMIPRIL. [Concomitant]
     Active Substance: RAMIPRIL
  5. HEMAX                              /00909301/ [Concomitant]
  6. PENTOXIFYLLIN [Concomitant]
     Active Substance: PENTOXIFYLLINE
  7. VELTASSA [Suspect]
     Active Substance: PATIROMER
     Indication: HYPERKALAEMIA
     Dosage: 8.4 MG, QD
     Route: 048
     Dates: start: 20160824, end: 2016
  8. SIMVASTATIN. [Concomitant]
     Active Substance: SIMVASTATIN
  9. ALLOPURINOL. [Concomitant]
     Active Substance: ALLOPURINOL
  10. CRESTOR [Concomitant]
     Active Substance: ROSUVASTATIN CALCIUM
  11. FOLIC ACID. [Concomitant]
     Active Substance: FOLIC ACID

REACTIONS (1)
  - Dialysis [Unknown]

NARRATIVE: CASE EVENT DATE: 2016
